FAERS Safety Report 20706078 (Version 1)
Quarter: 2022Q2

REPORT INFORMATION
  Report Type: Spontaneous
  Country: US (occurrence: US)
  Receive Date: 20220413
  Receipt Date: 20220413
  Transmission Date: 20220721
  Serious: Yes (Other)
  Sender: FDA-Public Use
  Company Number: US-BAYER-2022A051320

PATIENT
  Age: 70 Year
  Sex: Female

DRUGS (2)
  1. EYLEA [Suspect]
     Active Substance: AFLIBERCEPT
     Indication: Cystoid macular oedema
     Dosage: 27TH INJECTION AT ONSET OF EVENT,AND 15 INJECTIONS OVER A TWO-YEAR FOLLOW-UP PERIOD
     Route: 031
  2. EYLEA [Suspect]
     Active Substance: AFLIBERCEPT
     Indication: Retinal vein occlusion

REACTIONS (3)
  - Blindness transient [Recovered/Resolved]
  - Hypotony of eye [Recovered/Resolved]
  - Injection site pain [Recovered/Resolved]
